FAERS Safety Report 10221136 (Version 1)
Quarter: 2014Q2

REPORT INFORMATION
  Report Type: Other
  Country: DK (occurrence: US)
  Receive Date: 20140606
  Receipt Date: 20140606
  Transmission Date: 20141212
  Serious: Yes (Hospitalization)
  Sender: FDA-Public Use
  Company Number: US-FRI-1000067817

PATIENT
  Age: 19 Year
  Sex: Male

DRUGS (2)
  1. CITALOPRAM [Suspect]
  2. METHADONE [Suspect]

REACTIONS (1)
  - Cardiomyopathy [Recovered/Resolved]
